FAERS Safety Report 20283153 (Version 1)
Quarter: 2022Q1

REPORT INFORMATION
  Report Type: Spontaneous
  Country: US (occurrence: None)
  Receive Date: 20220103
  Receipt Date: 20220103
  Transmission Date: 20220423
  Serious: No
  Sender: FDA-Public Use
  Company Number: US-Merz Pharmaceuticals GmbH-21-04534

PATIENT
  Age: 42 Year
  Sex: Female

DRUGS (2)
  1. XEOMIN [Suspect]
     Active Substance: INCOBOTULINUMTOXINA
     Indication: Hemiplegia
     Route: 030
     Dates: start: 20211228, end: 20211228
  2. XEOMIN [Suspect]
     Active Substance: INCOBOTULINUMTOXINA
     Route: 030

REACTIONS (1)
  - Intentional product use issue [Unknown]

NARRATIVE: CASE EVENT DATE: 20211228
